FAERS Safety Report 6978540-0 (Version None)
Quarter: 2010Q3

REPORT INFORMATION
  Report Type: 
  Country: None (occurrence: None)
  Receive Date: 20100824
  Receipt Date: 20100702
  Transmission Date: 20110219
  Serious: No
  Sender: FDA-Public Use
  Company Number: 311238

PATIENT
  Age: 65 Year
  Sex: Female

DRUGS (1)
  1. VICTOZA [Suspect]
     Indication: TYPE 2 DIABETES MELLITUS
     Dosage: 1.8 U, QD, SUBCUTANEOUS ; 1.2 U, QD, SUBCUTANEOUS
     Route: 058

REACTIONS (2)
  - CONSTIPATION [None]
  - DYSPEPSIA [None]
